FAERS Safety Report 7621793-6 (Version None)
Quarter: 2011Q3

REPORT INFORMATION
  Report Type: 
  Country: None (occurrence: None)
  Receive Date: 20110720
  Receipt Date: 20110712
  Transmission Date: 20111222
  Serious: Yes (Hospitalization)
  Sender: FDA-Public Use
  Company Number: US-BIOGENIDEC-2010BI039974

PATIENT
  Age: 68 Year
  Sex: Male

DRUGS (1)
  1. TYSABRI [Suspect]
     Indication: MULTIPLE SCLEROSIS
     Route: 042
     Dates: start: 20080623

REACTIONS (6)
  - BLADDER FIBROSIS [None]
  - NEPHROLITHIASIS [None]
  - CALCULUS BLADDER [None]
  - UROSEPSIS [None]
  - CHONDROCALCINOSIS PYROPHOSPHATE [None]
  - PAIN [None]
